FAERS Safety Report 8859254 (Version 2)
Quarter: 2013Q1

REPORT INFORMATION
  Report Type: Spontaneous
  Country: US (occurrence: US)
  Receive Date: 20121024
  Receipt Date: 20130116
  Transmission Date: 20140127
  Serious: Yes (Hospitalization)
  Sender: FDA-Public Use
  Company Number: US-BAYER-2012-111150

PATIENT
  Age: 18 Year
  Sex: Female
  Weight: 90.7 kg

DRUGS (4)
  1. YASMIN [Suspect]
     Indication: ACNE
     Dosage: UNK
     Route: 048
     Dates: start: 2005, end: 2007
  2. YASMIN [Suspect]
     Indication: CONTRACEPTION
  3. TYLENOL [Concomitant]
     Dosage: UNK
  4. NAPROSYN [Concomitant]
     Dosage: UNK

REACTIONS (5)
  - Pancreatitis [None]
  - Pancreatitis [None]
  - Cholecystitis chronic [None]
  - Pain [None]
  - Pain [None]
